FAERS Safety Report 10204980 (Version 1)
Quarter: 2014Q2

REPORT INFORMATION
  Report Type: Spontaneous
  Country: US (occurrence: None)
  Receive Date: 20140527
  Receipt Date: 20140527
  Transmission Date: 20141212
  Serious: Yes (Disabling)
  Sender: FDA-Public Use
  Company Number: None

PATIENT
  Age: 54 Year
  Sex: Female
  Weight: 81.65 kg

DRUGS (1)
  1. NEOMYCIN AND POLYMYXIN B SULFATEAND HC OTIC SUSPENSION [Suspect]
     Indication: TYMPANIC MEMBRANE PERFORATION
     Dosage: ONE DROP THREE TIMES DAILY INTO THE EAR.
     Dates: start: 20140301, end: 20140310

REACTIONS (3)
  - Deafness [None]
  - Tinnitus [None]
  - Dizziness [None]
